FAERS Safety Report 7260617-6 (Version None)
Quarter: 2011Q1

REPORT INFORMATION
  Report Type: 
  Country: None (occurrence: None)
  Receive Date: 20110130
  Receipt Date: 20101110
  Transmission Date: 20110831
  Serious: No
  Sender: FDA-Public Use
  Company Number: US-ABBOTT-10P-163-0684793-00

PATIENT
  Age: 65 Year
  Sex: Male

DRUGS (10)
  1. HUMIRA [Suspect]
     Indication: PSORIATIC ARTHROPATHY
     Dates: start: 20100401
  2. ASPIRIN [Concomitant]
     Indication: PRODUCT USED FOR UNKNOWN INDICATION
  3. RYNA [Concomitant]
     Indication: HYPERSENSITIVITY
  4. VYTORIN [Concomitant]
     Indication: BLOOD CHOLESTEROL
  5. FOLTX [Concomitant]
     Indication: CARDIAC DISORDER
  6. RAMIPRIL [Concomitant]
     Indication: CARDIAC DISORDER
  7. BISOPR/HCZT [Concomitant]
     Indication: DIURETIC THERAPY
  8. CELEBREX [Concomitant]
     Indication: PRODUCT USED FOR UNKNOWN INDICATION
  9. FEXOFENADINE HCL [Concomitant]
     Indication: HYPERSENSITIVITY
  10. SINGULAIR [Concomitant]
     Indication: HYPERSENSITIVITY

REACTIONS (2)
  - INJECTION SITE HAEMORRHAGE [None]
  - HAEMORRHAGIC DISORDER [None]
